FAERS Safety Report 4829295-7 (Version None)
Quarter: 2005Q4

REPORT INFORMATION
  Report Type: 
  Country: None (occurrence: None)
  Receive Date: 20051116
  Receipt Date: 20051111
  Transmission Date: 20060501
  Serious: Yes (Hospitalization)
  Sender: FDA-Public Use
  Company Number: JP-JPN-A20052741

PATIENT
  Age: 71 Year
  Sex: Female
  Weight: 40 kg

DRUGS (7)
  1. PAXIL [Suspect]
     Indication: DEPRESSION
     Route: 048
     Dates: start: 20050819, end: 20051107
  2. AMOXAN [Suspect]
     Indication: DEPRESSION
     Route: 048
     Dates: start: 20050819, end: 20051107
  3. CALSLOT [Concomitant]
     Indication: HYPERTENSION
     Dosage: 10MG PER DAY
     Route: 048
  4. ALTAT [Concomitant]
     Indication: GASTRIC ULCER
     Dosage: 75MG PER DAY
     Route: 048
  5. HEPRONICATE [Concomitant]
     Indication: HYPERTENSION
     Dosage: 100MG TWICE PER DAY
     Route: 048
  6. MERISLON [Concomitant]
     Indication: DIZZINESS
     Dosage: 6MG TWICE PER DAY
     Route: 048
  7. METOCLOPRAMIDE [Concomitant]
     Indication: GASTRIC ULCER
     Dosage: 5MG TWICE PER DAY
     Route: 048

REACTIONS (5)
  - FEELING HOT [None]
  - GAIT DISTURBANCE [None]
  - HYPERHIDROSIS [None]
  - SEROTONIN SYNDROME [None]
  - TREMOR [None]
